FAERS Safety Report 22981900 (Version 4)
Quarter: 2023Q4

REPORT INFORMATION
  Report Type: Spontaneous
  Country: PT (occurrence: PT)
  Receive Date: 20230925
  Receipt Date: 20231114
  Transmission Date: 20240109
  Serious: Yes (Other)
  Sender: FDA-Public Use
  Company Number: PT-GILEAD-2023-0645147

PATIENT
  Age: 58 Year
  Sex: Female

DRUGS (2)
  1. TRODELVY [Suspect]
     Active Substance: SACITUZUMAB GOVITECAN-HZIY
     Indication: Breast cancer
     Dosage: UNK
     Route: 065
     Dates: start: 202203, end: 202207
  2. TRODELVY [Suspect]
     Active Substance: SACITUZUMAB GOVITECAN-HZIY
     Dosage: UNK
     Route: 065
     Dates: start: 202208

REACTIONS (7)
  - Disease progression [Unknown]
  - Panniculitis [Unknown]
  - Neutropenia [Unknown]
  - Constipation [Unknown]
  - Stomatitis [Recovered/Resolved]
  - Arthralgia [Unknown]
  - COVID-19 [Unknown]

NARRATIVE: CASE EVENT DATE: 20221101
